FAERS Safety Report 24971651 (Version 1)
Quarter: 2025Q1

REPORT INFORMATION
  Report Type: Spontaneous
  Country: JP (occurrence: JP)
  Receive Date: 20250214
  Receipt Date: 20250214
  Transmission Date: 20250408
  Serious: Yes (Hospitalization)
  Sender: EISAI
  Company Number: JP-Eisai-202414679_LEN-EC_P_1

PATIENT
  Age: 52 Year
  Sex: Female
  Weight: 65 kg

DRUGS (13)
  1. LENVIMA [Suspect]
     Active Substance: LENVATINIB
     Indication: Endometrial cancer recurrent
     Dates: start: 20241025, end: 20241105
  2. LENVIMA [Suspect]
     Active Substance: LENVATINIB
     Dates: start: 20241116, end: 20241116
  3. KEYTRUDA [Suspect]
     Active Substance: PEMBROLIZUMAB
     Indication: Endometrial cancer recurrent
     Dates: start: 20241025, end: 20241105
  4. KEYTRUDA [Suspect]
     Active Substance: PEMBROLIZUMAB
  5. KEYTRUDA [Suspect]
     Active Substance: PEMBROLIZUMAB
  6. KEYTRUDA [Suspect]
     Active Substance: PEMBROLIZUMAB
  7. LOXOPROFEN SODIUM DIHYDRATE [Concomitant]
     Active Substance: LOXOPROFEN SODIUM DIHYDRATE
     Indication: Pyrexia
  8. LOXOPROFEN SODIUM DIHYDRATE [Concomitant]
     Active Substance: LOXOPROFEN SODIUM DIHYDRATE
     Dosage: AFTER BREAKFAST AND DINNER
     Dates: start: 20241031
  9. REBAMIPIDE [Concomitant]
     Active Substance: REBAMIPIDE
  10. REBAMIPIDE [Concomitant]
     Active Substance: REBAMIPIDE
     Dosage: AFTER BREAKFAST AND DINNER
     Dates: start: 20241031
  11. MAGNESIUM OXIDE [Concomitant]
     Active Substance: MAGNESIUM OXIDE
     Dosage: AFTER EVERY MEAL
     Dates: start: 20241027
  12. HEPARINOID [Concomitant]
     Indication: Palmar-plantar erythrodysaesthesia syndrome
     Dosage: TOPICAL APPLICATION
     Dates: start: 20241026
  13. BETAMETHASONE BUTYRATE PROPIONATE [Concomitant]
     Active Substance: BETAMETHASONE BUTYRATE PROPIONATE
     Indication: Toxic skin eruption
     Dosage: MIX WITH HEPARINOID OIL CREAM IN A 1:1 RATIO AND APPLY.
     Dates: start: 20241107

REACTIONS (9)
  - Hypersensitivity [Recovered/Resolved]
  - Palmar-plantar erythrodysaesthesia syndrome [Recovering/Resolving]
  - Erythema [Recovering/Resolving]
  - Pyrexia [Recovered/Resolved]
  - Chills [Unknown]
  - Headache [Unknown]
  - Arthralgia [Unknown]
  - Toxic skin eruption [Recovered/Resolved]
  - Rash [Recovered/Resolved]

NARRATIVE: CASE EVENT DATE: 20241025
